FAERS Safety Report 24097963 (Version 1)
Quarter: 2024Q3

REPORT INFORMATION
  Report Type: Spontaneous
  Country: PL (occurrence: PL)
  Receive Date: 20240716
  Receipt Date: 20240716
  Transmission Date: 20241017
  Serious: Yes (Other)
  Sender: TAKEDA
  Company Number: PL-MLMSERVICE-20240628-PI115450-00117-1

PATIENT
  Age: 72 Year
  Sex: Male

DRUGS (2)
  1. VELCADE [Suspect]
     Active Substance: BORTEZOMIB
     Indication: Plasmacytoma
     Dosage: 5.2 MILLIGRAM/SQ. METER
     Route: 058
  2. DEXAMETHASONE [Suspect]
     Active Substance: DEXAMETHASONE
     Indication: Plasmacytoma
     Dosage: 160 MILLIGRAM
     Route: 065

REACTIONS (4)
  - Haemorrhage [Unknown]
  - Anaemia [Unknown]
  - Dizziness [Unknown]
  - Off label use [Unknown]
